FAERS Safety Report 6320365-3 (Version None)
Quarter: 2009Q3

REPORT INFORMATION
  Report Type: 
  Country: None (occurrence: None)
  Receive Date: 20090822
  Receipt Date: 20081104
  Transmission Date: 20100115
  Serious: No
  Sender: FDA-Public Use
  Company Number: US-ABBOTT-08P-163-0485648-00

PATIENT
  Sex: Male
  Weight: 90.8 kg

DRUGS (7)
  1. NIASPAN [Suspect]
     Indication: HIGH DENSITY LIPOPROTEIN DECREASED
     Route: 048
     Dates: start: 20080201, end: 20080201
  2. NIASPAN [Suspect]
     Route: 048
     Dates: start: 20081027
  3. ASPIRIN [Concomitant]
     Indication: PROPHYLAXIS
     Route: 048
     Dates: start: 20081027
  4. CARVEDILOL [Concomitant]
     Indication: CARDIAC DISORDER
     Dosage: 1/2 TAB BID
     Route: 048
  5. ROSUVASTATIN [Concomitant]
     Indication: BLOOD CHOLESTEROL
     Route: 048
  6. CLOPIDOGREL [Concomitant]
     Indication: CARDIAC DISORDER
     Route: 048
  7. MOEXIPRIL HCL [Concomitant]
     Indication: HYPERTENSION
     Route: 048

REACTIONS (6)
  - DIZZINESS [None]
  - ERYTHEMA [None]
  - FALL [None]
  - FEELING HOT [None]
  - PAIN OF SKIN [None]
  - PARAESTHESIA [None]
